FAERS Safety Report 17008490 (Version 1)
Quarter: 2019Q4

REPORT INFORMATION
  Report Type: Spontaneous
  Country: GB (occurrence: GB)
  Receive Date: 20191108
  Receipt Date: 20191108
  Transmission Date: 20200122
  Serious: Yes (Death, Other)
  Sender: FDA-Public Use
  Company Number: GB-ACCORD-160118

PATIENT
  Age: 37 Year
  Sex: Male

DRUGS (6)
  1. HYOSCINE [Concomitant]
     Active Substance: SCOPOLAMINE
  2. FOLIC ACID. [Concomitant]
     Active Substance: FOLIC ACID
  3. CITALOPRAM [Concomitant]
     Active Substance: CITALOPRAM HYDROBROMIDE
  4. SALBUTAMOL [Concomitant]
     Active Substance: ALBUTEROL
  5. PEPPERMINT OIL [Concomitant]
     Active Substance: PEPPERMINT OIL
  6. CLOZAPINE. [Suspect]
     Active Substance: CLOZAPINE
     Indication: SCHIZOPHRENIA
     Route: 048
     Dates: start: 20171106

REACTIONS (3)
  - Rhabdomyolysis [Fatal]
  - Sepsis [Fatal]
  - Circulatory collapse [Not Recovered/Not Resolved]
